FAERS Safety Report 19040187 (Version 1)
Quarter: 2021Q1

REPORT INFORMATION
  Report Type: Spontaneous
  Country: PT (occurrence: PT)
  Receive Date: 20210323
  Receipt Date: 20210323
  Transmission Date: 20210420
  Serious: Yes (Hospitalization, Other)
  Sender: FDA-Public Use
  Company Number: PT-LUPIN PHARMACEUTICALS INC.-2021-03473

PATIENT
  Age: 27 Year
  Sex: Male

DRUGS (3)
  1. TESTOSTERONE. [Suspect]
     Active Substance: TESTOSTERONE
     Indication: MUSCLE BUILDING THERAPY
     Dosage: 1 DOSAGE FORM (1 AT WEEK)
     Route: 030
  2. NANDROLONE [Suspect]
     Active Substance: NANDROLONE
     Indication: MUSCLE BUILDING THERAPY
     Dosage: 300 MILLIGRAM, QD
     Route: 065
  3. OXYMETHOLONE [Suspect]
     Active Substance: OXYMETHOLONE
     Indication: MUSCLE BUILDING THERAPY
     Dosage: 400 MILLIGRAM, QD
     Route: 065

REACTIONS (4)
  - VIth nerve paralysis [Unknown]
  - Cerebral venous thrombosis [Recovered/Resolved]
  - Papilloedema [Unknown]
  - Drug abuse [Recovered/Resolved]
